FAERS Safety Report 11629937 (Version 1)
Quarter: 2015Q4

REPORT INFORMATION
  Report Type: Other
  Country: CN (occurrence: CN)
  Receive Date: 20151014
  Receipt Date: 20151014
  Transmission Date: 20160304
  Serious: Yes (Other)
  Sender: FDA-Public Use
  Company Number: CN-ENDO PHARMACEUTICALS INC-2015-003274

PATIENT

DRUGS (2)
  1. ALLOPURINOL TABLETS [Suspect]
     Active Substance: ALLOPURINOL
     Indication: HYPERURICAEMIA
     Route: 065
  2. ALLOPURINOL TABLETS [Suspect]
     Active Substance: ALLOPURINOL
     Indication: GOUTY ARTHRITIS

REACTIONS (1)
  - Drug reaction with eosinophilia and systemic symptoms [Recovering/Resolving]
